FAERS Safety Report 5643006-7 (Version None)
Quarter: 2008Q1

REPORT INFORMATION
  Report Type: 
  Country: None (occurrence: None)
  Receive Date: 20080228
  Receipt Date: 20080225
  Transmission Date: 20080703
  Serious: Yes (Other)
  Sender: FDA-Public Use
  Company Number: D0055267A

PATIENT
  Age: 43 Year
  Sex: Female

DRUGS (3)
  1. REQUIP [Suspect]
     Route: 065
     Dates: start: 20071103
  2. CRATAEGUTT [Concomitant]
  3. ACTONEL [Concomitant]

REACTIONS (5)
  - CATARACT [None]
  - CHILLS [None]
  - MOVEMENT DISORDER [None]
  - NAUSEA [None]
  - TREMOR [None]
